FAERS Safety Report 9408654 (Version 2)
Quarter: 2013Q3

REPORT INFORMATION
  Report Type: Spontaneous
  Country: US (occurrence: US)
  Receive Date: 20130718
  Receipt Date: 20130809
  Transmission Date: 20140515
  Serious: Yes (Hospitalization, Other)
  Sender: FDA-Public Use
  Company Number: US-ABBOTT-13P-163-1117400-00

PATIENT
  Age: 54 Year
  Sex: Female
  Weight: 82.63 kg

DRUGS (1)
  1. HUMIRA [Suspect]
     Indication: RHEUMATOID ARTHRITIS
     Dates: start: 200606, end: 200612

REACTIONS (10)
  - Diplopia [Not Recovered/Not Resolved]
  - Activities of daily living impaired [Unknown]
  - Fall [Unknown]
  - Lung infection [Recovered/Resolved]
  - Lung infection [Unknown]
  - Cerebrovascular accident [Recovered/Resolved]
  - Brain abscess [Recovered/Resolved]
  - Central nervous system infection [Recovered/Resolved]
  - Mycobacterium tuberculosis complex test positive [Recovered/Resolved]
  - Gait disturbance [Not Recovered/Not Resolved]
